FAERS Safety Report 11443074 (Version 1)
Quarter: 2015Q3

REPORT INFORMATION
  Report Type: Spontaneous
  Country: AR (occurrence: AR)
  Receive Date: 20150901
  Receipt Date: 20150901
  Transmission Date: 20151125
  Serious: Yes (Other)
  Sender: FDA-Public Use
  Company Number: AR-PFIZER INC-2015280211

PATIENT
  Age: 77 Year
  Sex: Male

DRUGS (2)
  1. SUTENT [Suspect]
     Active Substance: SUNITINIB MALATE
     Dosage: 37.5 MG, CYCLIC (5 DAYS ON/2 DAYS OFF)
  2. SUTENT [Suspect]
     Active Substance: SUNITINIB MALATE
     Indication: METASTATIC RENAL CELL CARCINOMA
     Dosage: 37.5 MG, CYCLIC (4/2 SCHEME)
     Dates: start: 20141112

REACTIONS (8)
  - Nausea [Unknown]
  - Vomiting [Unknown]
  - Swelling [Unknown]
  - Pericardial effusion [Not Recovered/Not Resolved]
  - Diarrhoea [Unknown]
  - Drug intolerance [Unknown]
  - Blister [Unknown]
  - Gait disturbance [Unknown]
